FAERS Safety Report 24039699 (Version 1)
Quarter: 2024Q3

REPORT INFORMATION
  Report Type: Report from Study
  Country: CN (occurrence: CN)
  Receive Date: 20240702
  Receipt Date: 20240702
  Transmission Date: 20241017
  Serious: Yes (Other)
  Sender: RANBAXY
  Company Number: CN-SUN PHARMACEUTICAL INDUSTRIES LTD-2024R1-453815

PATIENT

DRUGS (4)
  1. PREDNISONE [Suspect]
     Active Substance: PREDNISONE
     Indication: Still^s disease
     Dosage: 15 MILLIGRAM, DAILY
     Route: 065
  2. CANAKINUMAB [Suspect]
     Active Substance: CANAKINUMAB
     Indication: Still^s disease
     Dosage: 5 MILLIGRAM/KILOGRAM,Q4W
     Route: 065
  3. CANAKINUMAB [Suspect]
     Active Substance: CANAKINUMAB
     Dosage: 5 MILLIGRAM/KILOGRAM,Q6W
     Route: 065
  4. CANAKINUMAB [Suspect]
     Active Substance: CANAKINUMAB
     Dosage: 5 MILLIGRAM/KILOGRAM,Q4W
     Route: 065

REACTIONS (4)
  - Upper respiratory tract infection [Unknown]
  - Therapy partial responder [Unknown]
  - Gastroenteritis [Unknown]
  - Condition aggravated [Unknown]
